FAERS Safety Report 8548861-9 (Version None)
Quarter: 2012Q3

REPORT INFORMATION
  Report Type: 
  Country: None (occurrence: None)
  Receive Date: 20120730
  Receipt Date: 20120725
  Transmission Date: 20120928
  Serious: Yes (Other)
  Sender: FDA-Public Use
  Company Number: PHFR2012GB003488

PATIENT
  Sex: Male

DRUGS (3)
  1. AMISULPRIDE [Suspect]
     Dosage: UNK UKN, UNK
  2. AMISULPRIDE [Suspect]
     Dosage: 200 MG, BID
  3. CLOZARIL [Suspect]
     Indication: SCHIZOPHRENIA
     Route: 048
     Dates: start: 20050425

REACTIONS (1)
  - BLOOD PROLACTIN INCREASED [None]
